FAERS Safety Report 16067100 (Version 1)
Quarter: 2019Q1

REPORT INFORMATION
  Report Type: Report from Study
  Country: IT (occurrence: IT)
  Receive Date: 20190313
  Receipt Date: 20190313
  Transmission Date: 20190418
  Serious: Yes (Other)
  Sender: FDA-Public Use
  Company Number: IT-MYLANLABS-2019M1022855

PATIENT

DRUGS (6)
  1. PREDNISONE. [Suspect]
     Active Substance: PREDNISONE
     Indication: PERIPHERAL T-CELL LYMPHOMA UNSPECIFIED
     Dosage: AS PART OF THE CHOEP REGIMEN; 6 CYCLES ADMINISTERED AS INDUCTION THERAPY EVERY 21 DAYS
     Route: 065
  2. ROMIDEPSIN. [Suspect]
     Active Substance: ROMIDEPSIN
     Indication: PERIPHERAL T-CELL LYMPHOMA UNSPECIFIED
     Dosage: ADMINISTERED ALONGSIDE THE CHOEP REGIMEN ON DAYS 1 AND 8 OF EACH CYCLE
     Route: 065
  3. VINCRISTINE [Suspect]
     Active Substance: VINCRISTINE
     Indication: PERIPHERAL T-CELL LYMPHOMA UNSPECIFIED
     Dosage: AS PART OF THE CHOEP REGIMEN; 6 CYCLES ADMINISTERED AS INDUCTION THERAPY EVERY 21 DAYS
     Route: 065
  4. DOXORUBICIN [Suspect]
     Active Substance: DOXORUBICIN
     Indication: PERIPHERAL T-CELL LYMPHOMA UNSPECIFIED
     Dosage: AS PART OF THE CHOEP REGIMEN; 6 CYCLES ADMINISTERED AS INDUCTION THERAPY EVERY 21 DAYS
     Route: 065
  5. ETOPOSIDE. [Suspect]
     Active Substance: ETOPOSIDE
     Indication: PERIPHERAL T-CELL LYMPHOMA UNSPECIFIED
     Dosage: AS PART OF THE CHOEP REGIMEN; 6 CYCLES ADMINISTERED AS INDUCTION THERAPY EVERY 21 DAYS
     Route: 065
  6. CYCLOPHOSPHAMIDE. [Suspect]
     Active Substance: CYCLOPHOSPHAMIDE
     Indication: PERIPHERAL T-CELL LYMPHOMA UNSPECIFIED
     Dosage: AS PART OF THE CHOEP REGIMEN; 6 CYCLES ADMINISTERED AS INDUCTION THERAPY EVERY 21 DAYS
     Route: 065

REACTIONS (1)
  - Arrhythmia [Unknown]
